FAERS Safety Report 8599493-8 (Version None)
Quarter: 2012Q3

REPORT INFORMATION
  Report Type: 
  Country: None (occurrence: None)
  Receive Date: 20120816
  Receipt Date: 20120803
  Transmission Date: 20120928
  Serious: No
  Sender: FDA-Public Use
  Company Number: US-ASTRAZENECA-2008UW25842

PATIENT
  Age: 67 Year
  Sex: Male
  Weight: 80.7 kg

DRUGS (12)
  1. NEXIUM [Suspect]
     Indication: BARRETT'S OESOPHAGUS
     Route: 048
  2. NEXIUM [Suspect]
     Route: 048
  3. NEXIUM [Suspect]
     Route: 048
     Dates: start: 20080101
  4. NEXIUM [Suspect]
     Route: 048
     Dates: start: 20080101
  5. NEXIUM [Suspect]
     Indication: GASTROOESOPHAGEAL REFLUX DISEASE
     Route: 048
  6. NEXIUM [Suspect]
     Route: 048
  7. NEXIUM [Suspect]
     Route: 048
     Dates: start: 20080101
  8. NEXIUM [Suspect]
     Route: 048
     Dates: start: 20010101, end: 20080101
  9. NEXIUM [Suspect]
     Route: 048
  10. NEXIUM [Suspect]
     Route: 048
  11. NEXIUM [Suspect]
     Route: 048
     Dates: start: 20010101, end: 20080101
  12. NEXIUM [Suspect]
     Route: 048
     Dates: start: 20010101, end: 20080101

REACTIONS (8)
  - GASTROOESOPHAGEAL REFLUX DISEASE [None]
  - DRUG INEFFECTIVE [None]
  - DIARRHOEA [None]
  - BLOOD CHOLESTEROL INCREASED [None]
  - INTENTIONAL DRUG MISUSE [None]
  - MUSCLE SPASMS [None]
  - HYPERTENSION [None]
  - OFF LABEL USE [None]
